FAERS Safety Report 7826770-8 (Version None)
Quarter: 2011Q4

REPORT INFORMATION
  Report Type: 
  Country: None (occurrence: None)
  Receive Date: 20111020
  Receipt Date: 20111005
  Transmission Date: 20120403
  Serious: Yes (Other)
  Sender: FDA-Public Use
  Company Number: US-BAYER-2011-048368

PATIENT
  Sex: Female
  Weight: 86.168 kg

DRUGS (4)
  1. NEXIUM [Concomitant]
     Dosage: 40 MG, QD
     Route: 048
     Dates: start: 20050811
  2. YAZ [Suspect]
     Indication: OVARIAN CYST
     Dosage: UNK
     Dates: start: 20020101, end: 20080101
  3. SINGULAIR [Concomitant]
     Dosage: UNK
     Route: 048
     Dates: start: 20050811
  4. YASMIN [Suspect]
     Indication: OVARIAN CYST
     Dosage: UNK
     Dates: start: 20020101, end: 20080101

REACTIONS (4)
  - PAIN [None]
  - INJURY [None]
  - CHOLELITHIASIS [None]
  - GALLBLADDER DISORDER [None]
